FAERS Safety Report 10047255 (Version 1)
Quarter: 2014Q1

REPORT INFORMATION
  Report Type: Spontaneous
  Country: US (occurrence: US)
  Receive Date: 20140331
  Receipt Date: 20140331
  Transmission Date: 20141002
  Serious: No
  Sender: FDA-Public Use
  Company Number: US-MYLANLABS-2013S1025115

PATIENT
  Sex: Male

DRUGS (2)
  1. FENTANYL TRANSDERMAL SYSTEM [Suspect]
     Indication: CANCER PAIN
     Dosage: CHANGED Q48H
     Route: 062
     Dates: start: 201308
  2. ISONIAZID W/RIFAMPICIN [Interacting]
     Indication: NEOPLASM MALIGNANT
     Dates: start: 201308

REACTIONS (3)
  - Drug effect decreased [Not Recovered/Not Resolved]
  - Cancer pain [Not Recovered/Not Resolved]
  - Drug interaction [Not Recovered/Not Resolved]
